FAERS Safety Report 13387129 (Version 8)
Quarter: 2019Q2

REPORT INFORMATION
  Report Type: Report from Study
  Country: US (occurrence: US)
  Receive Date: 20170330
  Receipt Date: 20190524
  Transmission Date: 20190711
  Serious: No
  Sender: FDA-Public Use
  Company Number: US-INCYTE CORPORATION-2016IN002158

PATIENT

DRUGS (50)
  1. JAKAFI [Suspect]
     Active Substance: RUXOLITINIB
     Dosage: 10 MILLIGRAM, QD
     Route: 048
     Dates: start: 20160420
  2. CETIRIZINE HCL [Concomitant]
     Active Substance: CETIRIZINE HYDROCHLORIDE
     Indication: POLYCYTHAEMIA VERA
     Dosage: 10 MILLIGRAM, QD
     Route: 065
     Dates: start: 20150508, end: 20150904
  3. DIPHENHYDRAMINE                    /00000402/ [Concomitant]
     Active Substance: DIPHENHYDRAMINE
     Indication: POLYCYTHAEMIA VERA
     Dosage: 25 MILLIGRAM, PRN
     Route: 065
     Dates: start: 201502
  4. HYDROXYUREA. [Concomitant]
     Active Substance: HYDROXYUREA
     Dosage: 1000 MG IN MORNING AND 500 MG IN EVENING
     Dates: start: 20150826, end: 20151027
  5. METOPROLOL TARTRATE. [Concomitant]
     Active Substance: METOPROLOL TARTRATE
     Dosage: 50 MG, BID
     Dates: start: 20150904, end: 20160405
  6. GABAPENTIN. [Concomitant]
     Active Substance: GABAPENTIN
     Indication: POLYCYTHAEMIA VERA
     Dosage: 300 MILLIGRAM, BID
     Route: 065
     Dates: start: 20161006, end: 20170203
  7. GABAPENTIN. [Concomitant]
     Active Substance: GABAPENTIN
     Dosage: 300 MG, TAKE 1 TABLET IN MORNING AND 2 TABLETS AT BEDTIME
     Dates: start: 20171218
  8. METHYLPHENIDATE. [Concomitant]
     Active Substance: METHYLPHENIDATE
     Indication: ASTHENIA
     Dosage: 10 MILLIGRAM, QD
     Route: 065
     Dates: start: 20170123, end: 20170914
  9. VENTOLIN [Concomitant]
     Active Substance: ALBUTEROL SULFATE
     Indication: PRODUCT USED FOR UNKNOWN INDICATION
     Dosage: UNK
     Route: 065
  10. JAKAFI [Suspect]
     Active Substance: RUXOLITINIB
     Indication: POLYCYTHAEMIA VERA
     Dosage: 10 MILLIGRAM, BID
     Route: 048
     Dates: start: 20160204, end: 20160405
  11. ERGOCALCIFEROL. [Concomitant]
     Active Substance: ERGOCALCIFEROL
     Indication: VITAMIN D DEFICIENCY
     Dosage: 5000 INTERNATIONAL UNIT, WEEKLY
     Route: 065
     Dates: start: 20150107, end: 20150518
  12. HYDROXYUREA. [Concomitant]
     Active Substance: HYDROXYUREA
     Dosage: 500 MG, BID
     Dates: start: 20150714, end: 20150825
  13. METOPROLOL TARTRATE. [Concomitant]
     Active Substance: METOPROLOL TARTRATE
     Dosage: 50 MG, TAKE 2 TABS IN AM, ONE TAB IN PM
     Dates: start: 20150601, end: 20150903
  14. PAROXETINE HCL [Concomitant]
     Active Substance: PAROXETINE HYDROCHLORIDE
     Indication: ADJUSTMENT DISORDER WITH ANXIETY
     Dosage: 20 MILLIGRAM, QD
     Route: 065
     Dates: start: 20150601
  15. SERTRALINE                         /01011402/ [Concomitant]
     Active Substance: SERTRALINE HYDROCHLORIDE
     Indication: ADJUSTMENT DISORDER WITH ANXIETY
     Dosage: 100 MILLIGRAM, QD
     Route: 065
     Dates: start: 20150306, end: 20150601
  16. LIDOCAINE VISCOUS [Concomitant]
     Active Substance: LIDOCAINE HYDROCHLORIDE
     Indication: CANDIDA INFECTION
     Dosage: 5 MILLILITER, QID
     Route: 065
     Dates: start: 20181017
  17. MAALOX ADVANCED                    /00416501/ [Concomitant]
     Indication: CANDIDA INFECTION
     Dosage: 5 MILLILITER, QID
     Route: 065
     Dates: start: 20181017
  18. NYSTATIN. [Concomitant]
     Active Substance: NYSTATIN
     Indication: CANDIDA INFECTION
     Dosage: 5 MILLILITER, QID
     Route: 065
     Dates: start: 20181017
  19. JAKAFI [Suspect]
     Active Substance: RUXOLITINIB
     Dosage: 10 MILLIGRAM, BID
     Route: 048
     Dates: start: 20160420
  20. METOPROLOL TARTRATE. [Concomitant]
     Active Substance: METOPROLOL TARTRATE
     Indication: HYPERTENSION
     Dosage: 50 MILLIGRAM, BID
     Route: 065
     Dates: start: 20141218, end: 20150531
  21. PRILOSEC [Concomitant]
     Active Substance: OMEPRAZOLE MAGNESIUM
     Indication: PRODUCT USED FOR UNKNOWN INDICATION
     Dosage: UNK
     Route: 065
  22. PAXIL [Concomitant]
     Active Substance: PAROXETINE HYDROCHLORIDE
     Indication: PRODUCT USED FOR UNKNOWN INDICATION
     Dosage: UNK
     Route: 065
  23. ASPIRIN                            /00002701/ [Concomitant]
     Active Substance: ASPIRIN
     Indication: POLYCYTHAEMIA VERA
     Dosage: 81 MILLIGRAM, QD
     Route: 065
     Dates: start: 20150130
  24. HYDROXYUREA. [Concomitant]
     Active Substance: HYDROXYUREA
     Dosage: 500 MG, BID
     Dates: start: 20151028, end: 20160105
  25. HYDROXYZINE HCL [Concomitant]
     Active Substance: HYDROXYZINE HYDROCHLORIDE
     Dosage: 25 MG, QID
     Dates: start: 20150714, end: 20150825
  26. OMEPRAZOLE. [Concomitant]
     Active Substance: OMEPRAZOLE
     Indication: GASTROOESOPHAGEAL REFLUX DISEASE
     Dosage: 20 MILLIGRAM, QD
     Route: 065
     Dates: start: 20160701
  27. JAKAFI [Suspect]
     Active Substance: RUXOLITINIB
     Indication: POLYCYTHAEMIA VERA
     Dosage: 10 MILLIGRAM, QD
     Route: 048
     Dates: start: 20160406, end: 20161013
  28. CLONIDINE HCL [Concomitant]
     Active Substance: CLONIDINE HYDROCHLORIDE
     Indication: HYPERTENSION
     Dosage: 0.1 MILLIGRAM, QD
     Route: 065
     Dates: start: 20160118, end: 20160701
  29. HYDROXYUREA. [Concomitant]
     Active Substance: HYDROXYUREA
     Indication: POLYCYTHAEMIA VERA
     Dosage: 500 MILLIGRAM, QD
     Route: 065
     Dates: start: 20150526, end: 20150713
  30. HYDROXYZINE HCL [Concomitant]
     Active Substance: HYDROXYZINE HYDROCHLORIDE
     Dosage: 25 MG, PRN
     Dates: start: 201508, end: 201509
  31. LEXAPRO [Concomitant]
     Active Substance: ESCITALOPRAM OXALATE
     Indication: PRODUCT USED FOR UNKNOWN INDICATION
     Route: 065
  32. ESCITALOPRAM [Concomitant]
     Active Substance: ESCITALOPRAM OXALATE
     Dosage: 10 MG, QD
     Route: 065
     Dates: start: 20180316
  33. LORAZEPAM. [Concomitant]
     Active Substance: LORAZEPAM
     Indication: ANXIETY
     Dosage: 1 MILLIGRAM, PRN
     Route: 065
     Dates: start: 201703
  34. JAKAFI [Suspect]
     Active Substance: RUXOLITINIB
     Dosage: 10 MILLIGRAM, BID
     Route: 048
     Dates: start: 20160420
  35. CLONAZEPAM. [Concomitant]
     Active Substance: CLONAZEPAM
     Indication: ADJUSTMENT DISORDER WITH ANXIETY
     Dosage: 0.5 MILLIGRAM, PRN
     Route: 065
     Dates: start: 20150601, end: 201609
  36. HYDROXYZINE HCL [Concomitant]
     Active Substance: HYDROXYZINE HYDROCHLORIDE
     Indication: POLYCYTHAEMIA VERA
     Dosage: 50 MILLIGRAM, PRN
     Route: 065
     Dates: start: 20150508, end: 20150713
  37. GABAPENTIN. [Concomitant]
     Active Substance: GABAPENTIN
     Dosage: 300 MG, TID
     Dates: start: 20170204, end: 20171217
  38. ZYRTEC [Concomitant]
     Active Substance: CETIRIZINE HYDROCHLORIDE
     Indication: PRODUCT USED FOR UNKNOWN INDICATION
     Dosage: UNK
     Route: 065
  39. JAKAFI [Suspect]
     Active Substance: RUXOLITINIB
     Dosage: 10 MILLIGRAM, BID
     Route: 048
     Dates: start: 20160420
  40. HYDROXYZINE HCL [Concomitant]
     Active Substance: HYDROXYZINE HYDROCHLORIDE
     Dosage: 25 MG, PRN
     Dates: start: 20151027, end: 20161014
  41. LOSARTAN POTASSIUM AND HYDROCHLOROTHIAZIDE [Concomitant]
     Active Substance: HYDROCHLOROTHIAZIDE\LOSARTAN POTASSIUM
     Indication: HYPERTENSION
     Dosage: 100-25 MG, QD
     Route: 065
     Dates: start: 20150904
  42. RITALIN [Concomitant]
     Active Substance: METHYLPHENIDATE HYDROCHLORIDE
     Indication: PRODUCT USED FOR UNKNOWN INDICATION
     Dosage: UNK
     Route: 065
  43. ESCITALOPRAM [Concomitant]
     Active Substance: ESCITALOPRAM OXALATE
     Indication: DEPRESSION
     Dosage: 10 MILLIGRAM, QD
     Route: 065
     Dates: start: 20170113
  44. EFFEXOR [Concomitant]
     Active Substance: VENLAFAXINE HYDROCHLORIDE
     Indication: DEPRESSION
     Dosage: 75 MILLIGRAM, QD
     Route: 065
     Dates: start: 20180316, end: 20181004
  45. JAKAFI [Suspect]
     Active Substance: RUXOLITINIB
     Dosage: 10 MILLIGRAM, BID
     Route: 048
     Dates: start: 20160420
  46. CETIRIZINE HCL [Concomitant]
     Active Substance: CETIRIZINE HYDROCHLORIDE
     Indication: RHINITIS ALLERGIC
     Dosage: 10 MG, QD
     Dates: start: 20160701
  47. CLONIDINE HCL [Concomitant]
     Active Substance: CLONIDINE HYDROCHLORIDE
     Indication: HOT FLUSH
  48. FEXOFENADINE [Concomitant]
     Active Substance: FEXOFENADINE\FEXOFENADINE HYDROCHLORIDE
     Indication: PRURITUS
     Dosage: 180 MILLIGRAM, QD
     Route: 065
     Dates: start: 20150904, end: 201509
  49. ESCITALOPRAM [Concomitant]
     Active Substance: ESCITALOPRAM OXALATE
     Dosage: 20 MG, QD
     Route: 065
     Dates: start: 20171217, end: 20180315
  50. EFFEXOR [Concomitant]
     Active Substance: VENLAFAXINE HYDROCHLORIDE
     Dosage: 150 MG, QD
     Route: 065
     Dates: start: 20181005

REACTIONS (12)
  - Non-cardiac chest pain [Not Recovered/Not Resolved]
  - Dizziness [Not Recovered/Not Resolved]
  - Capillary fragility [Recovered/Resolved]
  - Product dose omission [Unknown]
  - Fatigue [Not Recovered/Not Resolved]
  - Nausea [Not Recovered/Not Resolved]
  - Electrocardiogram abnormal [Recovered/Resolved]
  - Dyspnoea [Not Recovered/Not Resolved]
  - Pruritus [Not Recovered/Not Resolved]
  - Electrocardiogram abnormal [Not Recovered/Not Resolved]
  - Anaemia [Recovered/Resolved]
  - Nausea [Recovered/Resolved]

NARRATIVE: CASE EVENT DATE: 20160301
